FAERS Safety Report 4344060-5 (Version None)
Quarter: 2004Q2

REPORT INFORMATION
  Report Type: 
  Country: None (occurrence: None)
  Receive Date: 20040422
  Receipt Date: 20040413
  Transmission Date: 20050107
  Serious: Yes (Hospitalization)
  Sender: FDA-Public Use
  Company Number: IT-GLAXOSMITHKLINE-A0506872A

PATIENT
  Age: 71 Year
  Sex: Male

DRUGS (7)
  1. NAVELBINE [Suspect]
     Indication: NON-SMALL CELL LUNG CANCER
     Route: 048
     Dates: start: 20031219, end: 20040224
  2. NAVELBINE [Suspect]
     Route: 042
     Dates: start: 20031212, end: 20040217
  3. CISPLATIN [Suspect]
     Indication: NON-SMALL CELL LUNG CANCER
     Dosage: 80MGM2 CYCLIC
     Route: 042
     Dates: start: 20031212, end: 20040217
  4. ACETAMINOPHEN [Concomitant]
     Indication: CHEST PAIN
  5. GRANISETRON [Concomitant]
     Indication: PROPHYLACTIC CHEMOTHERAPY
  6. DEXAMETHASONE [Concomitant]
     Indication: PROPHYLACTIC CHEMOTHERAPY
  7. ONDANSETRON HCL [Concomitant]
     Indication: PROPHYLACTIC CHEMOTHERAPY

REACTIONS (13)
  - ANAEMIA [None]
  - ANOREXIA [None]
  - BLOOD CREATININE INCREASED [None]
  - COUGH [None]
  - DEAFNESS [None]
  - FATIGUE [None]
  - GENERAL PHYSICAL HEALTH DETERIORATION [None]
  - HYPOKALAEMIA [None]
  - HYPOMAGNESAEMIA [None]
  - NAUSEA [None]
  - PARAESTHESIA [None]
  - VOMITING [None]
  - WEIGHT DECREASED [None]
